FAERS Safety Report 8163785-7 (Version None)
Quarter: 2012Q1

REPORT INFORMATION
  Report Type: 
  Country: None (occurrence: None)
  Receive Date: 20120224
  Receipt Date: 20120216
  Transmission Date: 20120608
  Serious: Yes (Other)
  Sender: FDA-Public Use
  Company Number: PHHY2012CA001278

PATIENT
  Sex: Female

DRUGS (12)
  1. DIURETICS [Concomitant]
  2. ANGIOTENSIN RECEPTOR BLOCKERS [Concomitant]
  3. LIPITOR [Concomitant]
  4. CALCIUM CHANNEL BLOCKERS [Concomitant]
  5. LANTUS [Concomitant]
  6. ADALAT [Concomitant]
  7. OXYCONTIN [Concomitant]
  8. PLAVIX [Concomitant]
  9. HUMALOG [Concomitant]
  10. ALISKIREN [Suspect]
     Indication: HYPERTENSION
     Dosage: 300 MG, UNK
     Route: 048
     Dates: start: 20101014, end: 20120201
  11. BETA BLOCKING AGENTS [Concomitant]
  12. MONOCOR [Concomitant]

REACTIONS (5)
  - TYPE 2 DIABETES MELLITUS [None]
  - URINE ALBUMIN/CREATININE RATIO INCREASED [None]
  - CARDIAC FAILURE CONGESTIVE [None]
  - CORONARY ARTERY DISEASE [None]
  - OBESITY [None]
